FAERS Safety Report 16055205 (Version 2)
Quarter: 2019Q1

REPORT INFORMATION
  Report Type: Report from Study
  Country: US (occurrence: US)
  Receive Date: 20190311
  Receipt Date: 20190314
  Transmission Date: 20190418
  Serious: Yes (Hospitalization, Other)
  Sender: FDA-Public Use
  Company Number: US-EMD SERONO-9076104

PATIENT
  Age: 74 Year
  Sex: Female

DRUGS (1)
  1. REBIF [Suspect]
     Active Substance: INTERFERON BETA-1A
     Indication: PRODUCT USED FOR UNKNOWN INDICATION
     Route: 058
     Dates: start: 20061208

REACTIONS (8)
  - Vomiting [Unknown]
  - Tremor [Unknown]
  - Malaise [Recovering/Resolving]
  - Aspiration [Recovering/Resolving]
  - Balance disorder [Unknown]
  - Iron deficiency anaemia [Recovering/Resolving]
  - Myocardial necrosis marker increased [Unknown]
  - Pneumonia [Recovering/Resolving]

NARRATIVE: CASE EVENT DATE: 201901
